FAERS Safety Report 6983780-0 (Version None)
Quarter: 2010Q3

REPORT INFORMATION
  Report Type: 
  Country: None (occurrence: None)
  Receive Date: 20100914
  Receipt Date: 20080507
  Transmission Date: 20110219
  Serious: Yes (Death)
  Sender: FDA-Public Use
  Company Number: US-WYE-H07165208

PATIENT
  Age: 33 Year
  Sex: Male

DRUGS (5)
  1. IBUPROFEN [Suspect]
     Dosage: UNKNOWN
     Route: 065
  2. ETHANOL [Suspect]
     Dosage: UNKNOWN
     Route: 065
  3. SERTRALINE HYDROCHLORIDE [Suspect]
     Indication: ANXIETY
     Dosage: 50 MG
     Route: 065
     Dates: start: 20050401
  4. SERTRALINE HYDROCHLORIDE [Suspect]
     Indication: DEPRESSION
  5. SERTRALINE HYDROCHLORIDE [Suspect]
     Indication: ANGER

REACTIONS (1)
  - DEATH [None]
